FAERS Safety Report 8340150-0 (Version None)
Quarter: 2012Q2

REPORT INFORMATION
  Report Type: 
  Country: None (occurrence: None)
  Receive Date: 20120507
  Receipt Date: 20120409
  Transmission Date: 20120825
  Serious: No
  Sender: FDA-Public Use
  Company Number: US-ASTRAZENECA-2012SE23195

PATIENT
  Age: 83 Year
  Sex: Female

DRUGS (1)
  1. VIMOVO [Suspect]
     Dosage: 500 MG NAPROXEN + 20 MG ESOMEPRASOL MAGNESIUMN TWO TIMES A DAY
     Route: 048

REACTIONS (1)
  - CHEST PAIN [None]
